FAERS Safety Report 10086179 (Version 1)
Quarter: 2014Q2

REPORT INFORMATION
  Report Type: Spontaneous
  Country: US (occurrence: None)
  Receive Date: 20140417
  Receipt Date: 20140417
  Transmission Date: 20141212
  Serious: No
  Sender: FDA-Public Use
  Company Number: None

PATIENT
  Age: 31 Year
  Sex: Female
  Weight: 73.03 kg

DRUGS (3)
  1. GAMUNEX [Suspect]
     Indication: NEUROPATHY PERIPHERAL
     Dosage: 40 GM IV ONCE DAILY X 4 DAYS
     Dates: start: 20140330
  2. TYLENOL [Concomitant]
  3. BENADRYL [Concomitant]

REACTIONS (2)
  - Rash [None]
  - Infusion related reaction [None]
